FAERS Safety Report 15656732 (Version 4)
Quarter: 2020Q2

REPORT INFORMATION
  Report Type: Spontaneous
  Country: US (occurrence: US)
  Receive Date: 20181126
  Receipt Date: 20200519
  Transmission Date: 20200713
  Serious: Yes (Other)
  Sender: FDA-Public Use
  Company Number: US-SAKK-2018SA150866AA

PATIENT
  Age: 75 Year
  Sex: Female
  Weight: 72.56 kg

DRUGS (2)
  1. DUPIXENT [Suspect]
     Active Substance: DUPILUMAB
     Indication: DERMATITIS ATOPIC
     Dosage: 600 MG, 1X
     Route: 058
     Dates: start: 20180524, end: 20180524
  2. DUPIXENT [Suspect]
     Active Substance: DUPILUMAB
     Dosage: 300 MG, QOW
     Route: 058
     Dates: start: 2018, end: 2020

REACTIONS (14)
  - Balance disorder [Not Recovered/Not Resolved]
  - Head injury [Not Recovered/Not Resolved]
  - Pruritus [Unknown]
  - Skin weeping [Unknown]
  - Fall [Unknown]
  - Skin fissures [Unknown]
  - Skin exfoliation [Unknown]
  - Product dose omission [Unknown]
  - Contusion [Not Recovered/Not Resolved]
  - Dry skin [Unknown]
  - Deep vein thrombosis [Unknown]
  - Sleep disorder [Unknown]
  - Skin haemorrhage [Unknown]
  - Surgery [Unknown]

NARRATIVE: CASE EVENT DATE: 20180524
